FAERS Safety Report 6054526-8 (Version None)
Quarter: 2009Q1

REPORT INFORMATION
  Report Type: 
  Country: None (occurrence: None)
  Receive Date: 20090127
  Receipt Date: 20090120
  Transmission Date: 20090719
  Serious: Yes (Other)
  Sender: FDA-Public Use
  Company Number: PHHY2009FR02250

PATIENT
  Age: 50 Year
  Sex: Female

DRUGS (4)
  1. TEGRETOL [Suspect]
     Indication: BIPOLAR DISORDER
  2. LOXAPAC [Concomitant]
     Dosage: 25 MG, QD
  3. BENZODIAZEPINES [Concomitant]
     Indication: ANXIETY
  4. SEROPRAM [Concomitant]

REACTIONS (3)
  - ECZEMA [None]
  - RASH ERYTHEMATOUS [None]
  - SKIN PLAQUE [None]
